FAERS Safety Report 10350111 (Version 1)
Quarter: 2014Q3

REPORT INFORMATION
  Report Type: Spontaneous
  Country: US (occurrence: None)
  Receive Date: 20140728
  Receipt Date: 20140728
  Transmission Date: 20150326
  Serious: Yes (Hospitalization, Other)
  Sender: FDA-Public Use
  Company Number: SYM-2014-23438

PATIENT
  Age: 41 Year
  Sex: Female
  Weight: 79.82 kg

DRUGS (4)
  1. RISPERIDONE (RISPERIDONE) [Concomitant]
     Active Substance: RISPERIDONE
  2. ROZEREM (RAMELTEON) (RAMELTEON) [Concomitant]
  3. WELLBUTRIN [Suspect]
     Active Substance: BUPROPION HYDROCHLORIDE
     Indication: PRODUCT USED FOR UNKNOWN INDICATION
     Route: 048
     Dates: end: 20140620
  4. XYREM [Suspect]
     Active Substance: SODIUM OXYBATE
     Indication: SLEEP DISORDER
     Route: 048
     Dates: start: 200805

REACTIONS (5)
  - Depression [None]
  - Visual impairment [None]
  - Insomnia [None]
  - Anxiety [None]
  - Hallucination [None]

NARRATIVE: CASE EVENT DATE: 200805
